FAERS Safety Report 16858850 (Version 1)
Quarter: 2019Q3

REPORT INFORMATION
  Report Type: Spontaneous
  Country: DE (occurrence: DE)
  Receive Date: 20190926
  Receipt Date: 20190926
  Transmission Date: 20191005
  Serious: Yes (Other)
  Sender: FDA-Public Use
  Company Number: DE-EX USA HOLDINGS-EXHL20192384

PATIENT
  Age: 47 Year
  Sex: Female

DRUGS (1)
  1. LEVONORGESTREL AND ETHINYL ESTRADIOL [Suspect]
     Active Substance: ETHINYL ESTRADIOL\LEVONORGESTREL
     Indication: ORAL CONTRACEPTION
     Dosage: 0.03MG/0.15MG
     Route: 048

REACTIONS (2)
  - Leiomyoma [Recovering/Resolving]
  - Nodule [Recovering/Resolving]
